FAERS Safety Report 14618612 (Version 1)
Quarter: 2018Q1

REPORT INFORMATION
  Report Type: Other
  Country: DK (occurrence: DK)
  Receive Date: 20180309
  Receipt Date: 20180309
  Transmission Date: 20180509
  Serious: Yes (Hospitalization)
  Sender: FDA-Public Use
  Company Number: DK-CELLTRION INC.-2018DK018336

PATIENT

DRUGS (8)
  1. INFLECTRA [Suspect]
     Active Substance: INFLIXIMAB-DYYB
     Dosage: 460 MG EVERY 8 WEEKS
     Route: 042
     Dates: start: 20171115, end: 20171115
  2. FURIX [Concomitant]
     Active Substance: FUROSEMIDE
     Indication: DIURETIC THERAPY
     Dosage: 40 MG;DOSE 1 TABLET AS NEEDED TOGETHER WITH KALEORID
     Route: 048
     Dates: start: 20170807
  3. INFLECTRA [Suspect]
     Active Substance: INFLIXIMAB-DYYB
     Indication: CROHN^S DISEASE
     Dosage: 460 MG EVERY 8 WEEKS
     Route: 042
     Dates: start: 20170808, end: 20170808
  4. REMSIMA [Suspect]
     Active Substance: INFLIXIMAB
     Dosage: 460 MG EVERY 8 WEEK
     Route: 042
  5. REMSIMA [Suspect]
     Active Substance: INFLIXIMAB
     Indication: CROHN^S DISEASE
     Dosage: 460 MG EVERY 8 WEEK
     Route: 042
     Dates: start: 20170822, end: 20170822
  6. REMSIMA [Suspect]
     Active Substance: INFLIXIMAB
     Dosage: 460 MG EVERY 8 WEEK
     Route: 042
     Dates: start: 2017, end: 2017
  7. PAMOL [Concomitant]
     Active Substance: ACETAMINOPHEN
     Indication: PAIN
     Dosage: 1000 MG;DOSE: 2 TABLETS AS NEEDED
     Route: 048
     Dates: start: 20160316
  8. KALEORID [Concomitant]
     Active Substance: POTASSIUM CHLORIDE
     Indication: MINERAL SUPPLEMENTATION
     Dosage: 750 MG;TAKEN TOGETHER WITH FURIX
     Route: 048
     Dates: start: 20170807

REACTIONS (4)
  - Oropharyngeal pain [Recovering/Resolving]
  - Pericarditis [Recovering/Resolving]
  - Chest pain [Recovering/Resolving]
  - Pericardial disease [Recovering/Resolving]

NARRATIVE: CASE EVENT DATE: 201712
